FAERS Safety Report 6452551-6 (Version None)
Quarter: 2009Q4

REPORT INFORMATION
  Report Type: 
  Country: None (occurrence: None)
  Receive Date: 20091123
  Receipt Date: 20090224
  Transmission Date: 20100525
  Serious: No
  Sender: FDA-Public Use
  Company Number: US-AMGEN-KDL335482

PATIENT
  Sex: Female

DRUGS (3)
  1. ENBREL [Suspect]
     Indication: RHEUMATOID ARTHRITIS
     Route: 058
     Dates: start: 20090115
  2. SULFASALAZINE [Concomitant]
     Route: 048
     Dates: start: 20080301
  3. ARAVA [Concomitant]
     Route: 048
     Dates: start: 20080601

REACTIONS (1)
  - INJECTION SITE ERYTHEMA [None]
